FAERS Safety Report 19159790 (Version 1)
Quarter: 2021Q2

REPORT INFORMATION
  Report Type: Spontaneous
  Country: HK (occurrence: HK)
  Receive Date: 20210420
  Receipt Date: 20210420
  Transmission Date: 20210717
  Serious: Yes (Other)
  Sender: FDA-Public Use
  Company Number: HK-ASTRAZENECA-2021A305712

PATIENT
  Age: 78 Year
  Sex: Female

DRUGS (1)
  1. OSIMERTINIB. [Suspect]
     Active Substance: OSIMERTINIB
     Indication: EGFR GENE MUTATION
     Dosage: UNKNOWN
     Route: 048

REACTIONS (4)
  - Metastases to meninges [Unknown]
  - Incontinence [Unknown]
  - Hypoaesthesia [Unknown]
  - Carcinoembryonic antigen increased [Unknown]
